FAERS Safety Report 8856564 (Version 1)
Quarter: 2012Q4

REPORT INFORMATION
  Report Type: 
  Country: US (occurrence: US)
  Receive Date: 20121023
  Receipt Date: 20121023
  Transmission Date: 20130627
  Serious: No
  Sender: FDA-Public Use
  Company Number: US-AMGEN-USASP2012057164

PATIENT
  Age: 64 Year
  Sex: Female
  Weight: 115.65 kg

DRUGS (11)
  1. ENBREL [Suspect]
     Indication: PRODUCT USED FOR UNKNOWN INDICATION
     Dosage: 50 mg, qwk
     Route: 058
  2. ALLOPURINOL [Concomitant]
     Dosage: 100 mg, UNK
  3. METHOTREXATE [Concomitant]
     Dosage: 2.5 mg, UNK
  4. METHYLPRED [Concomitant]
     Dosage: 4 mg, UNK
  5. CLOBENZAPR [Concomitant]
     Dosage: 10 mg, UNK
  6. METOPROLOL [Concomitant]
     Dosage: 100 mg, UNK
  7. FOLIC ACID [Concomitant]
     Dosage: UNK
  8. LEVOTHROID [Concomitant]
     Dosage: 112 mcg, unk
  9. MAGNESIUM [Concomitant]
     Dosage: 400 mg, UNK
  10. PREVACID [Concomitant]
     Dosage: 30 mg, UNK
  11. TYLENOL/COD [Concomitant]
     Dosage: UNK

REACTIONS (2)
  - Gout [Unknown]
  - Drug dose omission [Unknown]
